FAERS Safety Report 8983724 (Version 2)
Quarter: 2013Q1

REPORT INFORMATION
  Report Type: Spontaneous
  Country: TR (occurrence: TR)
  Receive Date: 20121224
  Receipt Date: 20130301
  Transmission Date: 20140127
  Serious: Yes (Other)
  Sender: FDA-Public Use
  Company Number: PHHY2012TR117936

PATIENT
  Age: 72 Year
  Sex: Male

DRUGS (2)
  1. SANDOSTATIN LAR [Suspect]
     Indication: ACROMEGALY
     Dosage: 30 MG, ONCE EVERY 30 DAYS.
     Route: 030
  2. SANDOSTATIN LAR [Suspect]
     Dosage: 30 MG, ONCE EVERY 28 DAYS
     Route: 030

REACTIONS (2)
  - Prostatomegaly [Unknown]
  - Prostatic cyst [Unknown]
